FAERS Safety Report 4436656-7 (Version None)
Quarter: 2004Q3

REPORT INFORMATION
  Report Type: 
  Country: None (occurrence: None)
  Receive Date: 20040830
  Receipt Date: 20040728
  Transmission Date: 20050211
  Serious: No
  Sender: FDA-Public Use
  Company Number: US-BRISTOL-MYERS SQUIBB COMPANY-12654083

PATIENT
  Sex: Female
  Weight: 82 kg

DRUGS (4)
  1. ABILIFY [Suspect]
     Indication: BIPOLAR DISORDER
     Route: 048
  2. LAMICTAL [Concomitant]
  3. GABITRIL [Concomitant]
  4. LORAZEPAM [Concomitant]

REACTIONS (3)
  - ANXIETY DISORDER [None]
  - INSOMNIA [None]
  - WEIGHT INCREASED [None]
